FAERS Safety Report 4990790-1 (Version None)
Quarter: 2006Q2

REPORT INFORMATION
  Report Type: 
  Country: None (occurrence: None)
  Receive Date: 20060428
  Receipt Date: 20060418
  Transmission Date: 20061013
  Serious: Yes (Life-Threatening, Hospitalization)
  Sender: FDA-Public Use
  Company Number: FR200604001654

PATIENT
  Age: 56 Year
  Sex: Female

DRUGS (5)
  1. ZYPREXA [Suspect]
     Indication: DELUSIONAL DISORDER, PERSECUTORY TYPE
     Dosage: 7.5 MG, 2/D, ORAL
     Route: 048
     Dates: start: 20030101, end: 20050901
  2. PRAZEPAM [Concomitant]
  3. DEROXAT /SCH/ (PAROXETINE HYDROCHLORIDE) [Concomitant]
  4. LEPTICUR (TROPATEPINE HYDROCHLORIDE) [Concomitant]
  5. SULFARLEM (ANETHOLE TRITHIONE) [Concomitant]

REACTIONS (30)
  - AGITATION [None]
  - AMYOTROPHY [None]
  - BALANCE DISORDER [None]
  - BETA HAEMOLYTIC STREPTOCOCCAL INFECTION [None]
  - BLOOD BILIRUBIN INCREASED [None]
  - CONVULSION [None]
  - DELUSIONAL DISORDER, PERSECUTORY TYPE [None]
  - DYSARTHRIA [None]
  - DYSKINESIA [None]
  - ENCEPHALOPATHY [None]
  - ESCHAR [None]
  - FAECAL INCONTINENCE [None]
  - HYPERTHERMIA [None]
  - HYPOKALAEMIA [None]
  - HYPOTENSION [None]
  - INJECTION SITE INFECTION [None]
  - LOBAR PNEUMONIA [None]
  - MUSCLE RIGIDITY [None]
  - NECK PAIN [None]
  - NEUROLEPTIC MALIGNANT SYNDROME [None]
  - NORMOCHROMIC NORMOCYTIC ANAEMIA [None]
  - OEDEMA PERIPHERAL [None]
  - ORTHOSTATIC HYPOTENSION [None]
  - PROTHROMBIN LEVEL DECREASED [None]
  - PSYCHOTIC DISORDER [None]
  - PULMONARY INTERSTITIAL EMPHYSEMA SYNDROME [None]
  - SKIN INJURY [None]
  - STAPHYLOCOCCAL INFECTION [None]
  - THROMBOCYTOPENIA [None]
  - URINARY INCONTINENCE [None]
